FAERS Safety Report 23464460 (Version 1)
Quarter: 2024Q1

REPORT INFORMATION
  Report Type: Spontaneous
  Country: ES (occurrence: ES)
  Receive Date: 20240201
  Receipt Date: 20240201
  Transmission Date: 20240410
  Serious: Yes (Hospitalization, Other)
  Sender: FDA-Public Use
  Company Number: ES-IPCA LABORATORIES LIMITED-IPC-2024-ES-000189

PATIENT

DRUGS (2)
  1. FUROSEMIDE [Suspect]
     Active Substance: FUROSEMIDE
     Indication: Weight decreased
     Dosage: EQUIVALENT TO 80-120 MILLIGRAM
     Route: 065
  2. FUROSEMIDE [Suspect]
     Active Substance: FUROSEMIDE
     Dosage: RANGING FROM 120-160 MILLIGRAM PER DAY
     Route: 065

REACTIONS (7)
  - Nephrocalcinosis [Recovering/Resolving]
  - Hypokalaemia [Recovering/Resolving]
  - Hyperaldosteronism [Recovering/Resolving]
  - Metabolic alkalosis [Recovering/Resolving]
  - Paraesthesia [Recovering/Resolving]
  - Weight decreased [Recovering/Resolving]
  - Drug abuse [Recovering/Resolving]
